FAERS Safety Report 8496447-7 (Version None)
Quarter: 2012Q3

REPORT INFORMATION
  Report Type: 
  Country: None (occurrence: None)
  Receive Date: 20120709
  Receipt Date: 20120628
  Transmission Date: 20120928
  Serious: Yes (Hospitalization)
  Sender: FDA-Public Use
  Company Number: JP-BRISTOL-MYERS SQUIBB COMPANY-16741811

PATIENT
  Age: 66 Year
  Sex: Male
  Weight: 56 kg

DRUGS (3)
  1. CETUXIMAB [Suspect]
     Indication: GASTRIC CANCER
     Dosage: FORM: 5MG/ML.
     Route: 042
     Dates: start: 20111124, end: 20120621
  2. CISPLATIN [Suspect]
     Indication: GASTRIC CANCER
     Dosage: ON DAY 8 OF EACH CYCLE
     Route: 042
     Dates: start: 20111124
  3. TS-1 [Suspect]
     Indication: GASTRIC CANCER
     Dosage: CAPS
     Route: 048
     Dates: start: 20111124

REACTIONS (2)
  - GRAFT THROMBOSIS [None]
  - DECREASED APPETITE [None]
